FAERS Safety Report 7906939-4 (Version None)
Quarter: 2011Q4

REPORT INFORMATION
  Report Type: 
  Country: None (occurrence: None)
  Receive Date: 20111109
  Receipt Date: 20111109
  Transmission Date: 20120403
  Serious: Yes (Other)
  Sender: FDA-Public Use
  Company Number: None

PATIENT
  Age: 69 Year
  Sex: Male
  Weight: 83.9154 kg

DRUGS (1)
  1. NIFEDIPINE [Suspect]
     Indication: CARDIAC DISORDER
     Dosage: 60 MG 1 DAILY BY MOUTH
     Route: 048
     Dates: start: 20110912, end: 20111010

REACTIONS (1)
  - GASTRIC DISORDER [None]
